FAERS Safety Report 17444667 (Version 1)
Quarter: 2020Q1

REPORT INFORMATION
  Report Type: Spontaneous
  Country: HU (occurrence: HU)
  Receive Date: 20200221
  Receipt Date: 20200221
  Transmission Date: 20200409
  Serious: Yes (Other)
  Sender: FDA-Public Use
  Company Number: HU-TEVA-2020-HU-1189145

PATIENT
  Age: 46 Year
  Sex: Female

DRUGS (13)
  1. VITAMIN B12 RICHTER [Concomitant]
  2. NOACID [Concomitant]
     Route: 042
  3. FRAGMIN [Concomitant]
     Active Substance: DALTEPARIN SODIUM
     Route: 058
  4. CITALOPRAM ORION [Concomitant]
     Active Substance: CITALOPRAM HYDROBROMIDE
  5. FUROSEMID-CHINOIN [Concomitant]
     Route: 042
  6. VITAMIN B6 EGIS [Concomitant]
  7. VITAMIN C EGIS [Concomitant]
  8. METRONIDAZOL-HUMAN TEVA GY?GYSZERGY?R 5 MG/ML OLDATOS INF?ZI? [Suspect]
     Active Substance: METRONIDAZOLE
     Indication: STENOTROPHOMONAS SEPSIS
     Dosage: 500 MG
     Route: 042
     Dates: start: 20200108
  9. CLONIDIN-RATIOPHARM 0,15 MG AMPULLEN INJEKTIONSL?SUNG [Concomitant]
  10. ACTRAPID [Concomitant]
     Active Substance: INSULIN HUMAN
  11. COTRIM-RATIOPHARM AMPULLEN SF 480 MG/5 ML [Suspect]
     Active Substance: SULFAMETHOXAZOLE\TRIMETHOPRIM
     Indication: STENOTROPHOMONAS SEPSIS
     Dosage: 2400 MG
     Route: 042
     Dates: start: 20200108
  12. CONCOR [Concomitant]
     Active Substance: BISOPROLOL FUMARATE
  13. VITAMIN B1 - ZENTIVA 50 MG OLDATOS INJEKCI? [Concomitant]

REACTIONS (1)
  - Blood lactic acid increased [Recovered/Resolved]

NARRATIVE: CASE EVENT DATE: 20200108
